FAERS Safety Report 7378529-6 (Version None)
Quarter: 2011Q1

REPORT INFORMATION
  Report Type: 
  Country: None (occurrence: None)
  Receive Date: 20110323
  Receipt Date: 20110323
  Transmission Date: 20110831
  Serious: No
  Sender: FDA-Public Use
  Company Number: None

PATIENT
  Age: 32 Year
  Sex: Female
  Weight: 95.2554 kg

DRUGS (2)
  1. PREDNISONE [Suspect]
     Indication: RHEUMATOID ARTHRITIS
     Dosage: 4 PILLS DAILY PO
     Route: 048
     Dates: start: 20110317, end: 20110319
  2. PREDNISONE [Suspect]
     Indication: ARTHRALGIA
     Dosage: 4 PILLS DAILY PO
     Route: 048
     Dates: start: 20110317, end: 20110319

REACTIONS (3)
  - DRUG HYPERSENSITIVITY [None]
  - FLUSHING [None]
  - PRURITUS [None]
